FAERS Safety Report 8592032-7 (Version None)
Quarter: 2012Q3

REPORT INFORMATION
  Report Type: 
  Country: None (occurrence: None)
  Receive Date: 20120814
  Receipt Date: 20120806
  Transmission Date: 20120928
  Serious: Yes (Hospitalization, Other)
  Sender: FDA-Public Use
  Company Number: PHHY2010US85561

PATIENT
  Sex: Female

DRUGS (3)
  1. GLEEVEC [Suspect]
     Dosage: 400 MG, DAILY
     Route: 048
     Dates: start: 20110630
  2. GLEEVEC [Suspect]
     Indication: CHRONIC MYELOID LEUKAEMIA
     Dosage: 400 MG, DAILY
     Route: 048
     Dates: start: 20101115
  3. NEXIUM [Concomitant]

REACTIONS (7)
  - BRONCHITIS [None]
  - NAUSEA [None]
  - NEUROPATHY PERIPHERAL [None]
  - SKIN DISORDER [None]
  - PNEUMONIA [None]
  - DRY SKIN [None]
  - VOMITING [None]
